FAERS Safety Report 5029518-8 (Version None)
Quarter: 2006Q2

REPORT INFORMATION
  Report Type: 
  Country: None (occurrence: None)
  Receive Date: 20060620
  Receipt Date: 20051108
  Transmission Date: 20061013
  Serious: No
  Sender: FDA-Public Use
  Company Number: US-GLAXOSMITHKLINE-A0581437A

PATIENT
  Age: 44 Year
  Sex: Female

DRUGS (1)
  1. ZYBAN [Suspect]
     Dosage: 1TAB PER DAY
     Route: 048
     Dates: start: 20051031, end: 20051107

REACTIONS (5)
  - BACK PAIN [None]
  - BLOOD PRESSURE INCREASED [None]
  - DYSURIA [None]
  - PARAESTHESIA [None]
  - POLLAKIURIA [None]
